FAERS Safety Report 21209690 (Version 1)
Quarter: 2022Q3

REPORT INFORMATION
  Report Type: Report from Study
  Country: CR (occurrence: CR)
  Receive Date: 20220813
  Receipt Date: 20220813
  Transmission Date: 20221027
  Serious: Yes (Other)
  Sender: FDA-Public Use
  Company Number: CR-NOVARTISPH-PHHY2019CR101816

PATIENT
  Age: 78 Year
  Sex: Female

DRUGS (3)
  1. DIOVAN [Suspect]
     Active Substance: VALSARTAN
     Indication: Hypertension
     Dosage: 80 MG
     Route: 065
  2. DIOVAN [Suspect]
     Active Substance: VALSARTAN
     Dosage: 320 MG (APPROXIMATELY 2 YEARS AGO)
     Route: 065
  3. DIOVAN [Suspect]
     Active Substance: VALSARTAN
     Dosage: 160 MG (APPROXIMATELY 2 YEARS AGO)
     Route: 065

REACTIONS (3)
  - Infarction [Unknown]
  - Hypertension [Unknown]
  - Drug ineffective [Unknown]
